FAERS Safety Report 9871226 (Version 4)
Quarter: 2015Q3

REPORT INFORMATION
  Report Type: Spontaneous
  Country: US (occurrence: US)
  Receive Date: 20140205
  Receipt Date: 20150714
  Transmission Date: 20151125
  Serious: Yes (Hospitalization)
  Sender: FDA-Public Use
  Company Number: US-BAYER-2014-014175

PATIENT
  Age: 26 Year
  Sex: Female
  Weight: 100.68 kg

DRUGS (3)
  1. MIRENA [Suspect]
     Active Substance: LEVONORGESTREL
     Indication: CONTRACEPTION
     Dosage: 20 MCG/24HR, CONT
     Route: 015
     Dates: start: 20091223, end: 20130122
  2. MIRENA [Suspect]
     Active Substance: LEVONORGESTREL
     Indication: CONTRACEPTION
     Dosage: 20 MCG/24HR, CONT
     Route: 015
     Dates: start: 20091223, end: 20130122
  3. LORTAB [Concomitant]
     Active Substance: ACETAMINOPHEN\HYDROCODONE BITARTRATE

REACTIONS (15)
  - Menorrhagia [None]
  - Injury [None]
  - Medical device discomfort [None]
  - Emotional distress [None]
  - Depression [None]
  - Anxiety [None]
  - Uterine perforation [None]
  - Back pain [None]
  - Drug ineffective [None]
  - Medical device complication [None]
  - Internal injury [None]
  - Fear [None]
  - Ectopic pregnancy with contraceptive device [None]
  - Abdominal pain lower [None]
  - Genital haemorrhage [None]

NARRATIVE: CASE EVENT DATE: 20130119
